FAERS Safety Report 17138301 (Version 1)
Quarter: 2019Q4

REPORT INFORMATION
  Report Type: Spontaneous
  Country: SE (occurrence: SE)
  Receive Date: 20191211
  Receipt Date: 20191211
  Transmission Date: 20200122
  Serious: Yes (Hospitalization)
  Sender: FDA-Public Use
  Company Number: SE-TEVA-2019-SE-1148993

PATIENT
  Sex: Female

DRUGS (6)
  1. QUETIAPINE. [Suspect]
     Active Substance: QUETIAPINE
     Route: 048
     Dates: start: 20181009, end: 20181009
  2. ZOPICLONE [Suspect]
     Active Substance: ZOPICLONE
     Dosage: 4 ST
     Route: 048
     Dates: start: 20181009, end: 20181009
  3. LERGIGAN (PROMETHAZINE HYDROCHLORIDE) [Suspect]
     Active Substance: PROMETHAZINE HYDROCHLORIDE
     Route: 048
     Dates: start: 20181009, end: 20181009
  4. DIVISUN [Suspect]
     Active Substance: CHOLECALCIFEROL
     Dosage: ^EN DIVISUM^
     Route: 048
     Dates: start: 20181009, end: 20181009
  5. ANAFRANIL [Suspect]
     Active Substance: CLOMIPRAMINE HYDROCHLORIDE
     Route: 048
     Dates: start: 20181009, end: 20181009
  6. LAMICTAL [Suspect]
     Active Substance: LAMOTRIGINE
     Route: 048
     Dates: start: 20181009, end: 20181009

REACTIONS (3)
  - Loss of consciousness [Unknown]
  - Intentional self-injury [Unknown]
  - Intentional overdose [Unknown]

NARRATIVE: CASE EVENT DATE: 20181009
